FAERS Safety Report 6753029-2 (Version None)
Quarter: 2010Q2

REPORT INFORMATION
  Report Type: 
  Country: None (occurrence: None)
  Receive Date: 20100601
  Receipt Date: 20100520
  Transmission Date: 20101027
  Serious: Yes (Other)
  Sender: FDA-Public Use
  Company Number: US-1180880

PATIENT
  Sex: Male
  Weight: 51.7101 kg

DRUGS (5)
  1. FLAREX [Suspect]
     Dosage: OPHTHALMIC
     Route: 047
     Dates: start: 20090919, end: 20091010
  2. INSULIN [Concomitant]
  3. NIFEDIPINE [Concomitant]
  4. LISINOPRIL [Concomitant]
  5. NIASPAN [Concomitant]

REACTIONS (10)
  - EYE DISCHARGE [None]
  - EYE IRRITATION [None]
  - EYE PAIN [None]
  - EYELID MARGIN CRUSTING [None]
  - FOREIGN BODY SENSATION IN EYES [None]
  - IMPAIRED DRIVING ABILITY [None]
  - MEDICATION RESIDUE [None]
  - RETINAL DETACHMENT [None]
  - RETINAL TEAR [None]
  - VISUAL ACUITY REDUCED [None]
